FAERS Safety Report 9385854 (Version 1)
Quarter: 2013Q3

REPORT INFORMATION
  Report Type: Spontaneous
  Country: PL (occurrence: PL)
  Receive Date: 20130705
  Receipt Date: 20130705
  Transmission Date: 20140515
  Serious: Yes (Other)
  Sender: FDA-Public Use
  Company Number: PL-WATSON-2013-11882

PATIENT
  Age: 15 Year
  Sex: Female

DRUGS (1)
  1. CEFUROXIME (UNKNOWN) [Suspect]
     Indication: URINARY TRACT DISORDER
     Dosage: 4.5 G, UNK
     Route: 042
     Dates: start: 20130608

REACTIONS (5)
  - Erythema [Recovered/Resolved]
  - Anxiety [Recovered/Resolved]
  - Agitation [Recovered/Resolved]
  - Abdominal pain upper [Recovered/Resolved]
  - Lip oedema [Recovered/Resolved]
